FAERS Safety Report 7912581-1 (Version None)
Quarter: 2011Q4

REPORT INFORMATION
  Report Type: 
  Country: None (occurrence: None)
  Receive Date: 20111114
  Receipt Date: 20111101
  Transmission Date: 20120403
  Serious: Yes (Other)
  Sender: FDA-Public Use
  Company Number: GB-CELGENEUS-167-21880-11110133

PATIENT

DRUGS (1)
  1. REVLIMID [Suspect]
     Route: 065

REACTIONS (1)
  - CEREBRAL SMALL VESSEL ISCHAEMIC DISEASE [None]
